FAERS Safety Report 12067775 (Version 1)
Quarter: 2016Q1

REPORT INFORMATION
  Report Type: Spontaneous
  Country: US (occurrence: US)
  Receive Date: 20160211
  Receipt Date: 20160211
  Transmission Date: 20160526
  Serious: No
  Sender: FDA-Public Use
  Company Number: US-SMITH AND NEPHEW, INC-2015SMT00044

PATIENT
  Age: 53 Year
  Sex: Male

DRUGS (14)
  1. SINGULAIR [Concomitant]
     Active Substance: MONTELUKAST SODIUM
  2. VEETIDS [Concomitant]
     Active Substance: PENICILLIN V POTASSIUM
  3. CLARITIN [Concomitant]
     Active Substance: LORATADINE
  4. CYMBALTA [Concomitant]
     Active Substance: DULOXETINE HYDROCHLORIDE
  5. REGRANEX [Suspect]
     Active Substance: BECAPLERMIN
     Indication: SKIN ULCER
     Dosage: UNK
     Route: 061
     Dates: start: 20150330, end: 20150409
  6. ALLOPURINOL. [Concomitant]
     Active Substance: ALLOPURINOL
  7. KLONOPIN [Concomitant]
     Active Substance: CLONAZEPAM
  8. CATAPRES [Concomitant]
     Active Substance: CLONIDINE HYDROCHLORIDE
  9. NEURONTIN [Concomitant]
     Active Substance: GABAPENTIN
  10. REMERON [Concomitant]
     Active Substance: MIRTAZAPINE
  11. COREG [Concomitant]
     Active Substance: CARVEDILOL
  12. HYDROCODONE [Concomitant]
     Active Substance: HYDROCODONE
  13. INDOCIN [Concomitant]
     Active Substance: INDOMETHACIN\INDOMETHACIN SODIUM
  14. NUVIGIL [Concomitant]
     Active Substance: ARMODAFINIL

REACTIONS (2)
  - Off label use [Unknown]
  - Vision blurred [Unknown]

NARRATIVE: CASE EVENT DATE: 2015
